FAERS Safety Report 25531651 (Version 4)
Quarter: 2025Q4

REPORT INFORMATION
  Report Type: Spontaneous
  Country: JP (occurrence: JP)
  Receive Date: 20250709
  Receipt Date: 20251117
  Transmission Date: 20260117
  Serious: Yes (Hospitalization)
  Sender: ASTELLAS
  Company Number: JP-ASTELLAS-2025-AER-036883

PATIENT
  Age: 79 Year
  Sex: Male

DRUGS (5)
  1. PADCEV [Suspect]
     Active Substance: ENFORTUMAB VEDOTIN-EJFV
     Indication: Product used for unknown indication
     Route: 042
     Dates: start: 20250514, end: 20250625
  2. PADCEV [Suspect]
     Active Substance: ENFORTUMAB VEDOTIN-EJFV
     Route: 042
     Dates: start: 20250820, end: 20250827
  3. PEMBROLIZUMAB [Suspect]
     Active Substance: PEMBROLIZUMAB
     Indication: Transitional cell carcinoma
     Route: 042
     Dates: start: 20250514, end: 20250625
  4. PEMBROLIZUMAB [Suspect]
     Active Substance: PEMBROLIZUMAB
     Route: 042
     Dates: start: 20250820, end: 20250827
  5. BISOPROLOL [Concomitant]
     Active Substance: BISOPROLOL
     Indication: Thyroiditis
     Route: 065
     Dates: start: 202507

REACTIONS (2)
  - Pruritus [Recovered/Resolved]
  - Thyroiditis [Recovered/Resolved]

NARRATIVE: CASE EVENT DATE: 20250701
